FAERS Safety Report 9621515 (Version 1)
Quarter: 2013Q4

REPORT INFORMATION
  Report Type: Spontaneous
  Country: US (occurrence: None)
  Receive Date: 20131011
  Receipt Date: 20131011
  Transmission Date: 20140711
  Serious: No
  Sender: FDA-Public Use
  Company Number: None

PATIENT
  Age: 47 Year
  Sex: Female

DRUGS (3)
  1. INCIVEK [Suspect]
     Dosage: TAKE 2 TABLETS (750 MG( THREE TIMES A DAY 97 TO 2 HOURS APART). TAKE WITH FOOD
     Dates: start: 20130725
  2. RIBAPAK [Concomitant]
  3. PEGASYS PROCLICK [Concomitant]

REACTIONS (4)
  - Anaemia [None]
  - Tremor [None]
  - Palpitations [None]
  - Dyspnoea [None]
